FAERS Safety Report 4995371-1 (Version None)
Quarter: 2006Q2

REPORT INFORMATION
  Report Type: 
  Country: None (occurrence: None)
  Receive Date: 20060508
  Receipt Date: 20050301
  Transmission Date: 20061013
  Serious: Yes (Other)
  Sender: FDA-Public Use
  Company Number: DE-BRISTOL-MYERS SQUIBB COMPANY-13342100

PATIENT
  Sex: Male
  Weight: 61 kg

DRUGS (19)
  1. REYATAZ [Suspect]
     Indication: HIV INFECTION
     Dates: start: 20040201
  2. ZERIT [Suspect]
     Indication: HIV INFECTION
     Dosage: TAKING IRREGULARLY
     Dates: start: 19980101
  3. VIDEX [Suspect]
     Indication: HIV INFECTION
     Dates: start: 19990601
  4. NEVIRAPINE [Suspect]
     Indication: HIV INFECTION
     Dosage: TAKING IRREGULARLY
     Dates: start: 19990101
  5. LAMIVUDINE [Suspect]
     Indication: HIV INFECTION
     Dosage: TAKING IRREGULARLY
     Dates: start: 19990101
  6. INDINIVIR SULFATE [Suspect]
     Indication: HIV INFECTION
     Dates: start: 19990601
  7. ZIDOVUDINE [Suspect]
     Indication: HIV INFECTION
     Dates: start: 19990601
  8. TENOFOVIR [Suspect]
     Indication: HIV INFECTION
     Dates: start: 20040201
  9. RITONAVIR [Suspect]
     Indication: HIV INFECTION
     Dates: start: 20040201
  10. PENTAMIDINE ISETHIONATE [Concomitant]
     Indication: ANTIBIOTIC PROPHYLAXIS
     Dosage: TAKING IRREGULARLY
     Dates: start: 19990101
  11. CO-TRIMOXAZOLE [Concomitant]
     Indication: ANTIBIOTIC PROPHYLAXIS
     Dosage: MONDAY, WEDNESDAY, FRIDAY
     Dates: start: 19990601
  12. HEPATITIS A VIRUS VACCINE [Concomitant]
     Dates: start: 20000201
  13. HEPATITIS B VIRUS VACCINE [Concomitant]
     Dates: start: 20000201
  14. TETANUS VACCINE [Concomitant]
     Dates: start: 20000201
  15. VACCINE [Concomitant]
     Dosage: DIPHTHERIA
     Dates: start: 20000201
  16. POLIO VACCINE [Concomitant]
     Dates: start: 20000201
  17. PNEUMOCOCCAL VACCINE [Concomitant]
     Dates: start: 20000201
  18. INFLUENZA VACCINE [Concomitant]
     Dates: start: 20021201
  19. CHEMOTHERAPY [Concomitant]
     Indication: NON-HODGKIN'S LYMPHOMA
     Dates: start: 20040101

REACTIONS (20)
  - ABASIA [None]
  - ARTHRALGIA [None]
  - ASTHENIA [None]
  - BLOOD HIV RNA INCREASED [None]
  - DIARRHOEA [None]
  - DRUG RESISTANCE [None]
  - GENERAL NUTRITION DISORDER [None]
  - GENERAL PHYSICAL HEALTH DETERIORATION [None]
  - HEPATOMEGALY [None]
  - HYPOTENSION [None]
  - JOINT SPRAIN [None]
  - MUCOSAL DISCOLOURATION [None]
  - MULTIPLE-DRUG RESISTANCE [None]
  - NON-HODGKIN'S LYMPHOMA [None]
  - PALLOR [None]
  - SALMONELLOSIS [None]
  - SPLENOMEGALY [None]
  - TACHYCARDIA [None]
  - TREATMENT NONCOMPLIANCE [None]
  - WEIGHT INCREASED [None]
